FAERS Safety Report 6150619-5 (Version None)
Quarter: 2009Q2

REPORT INFORMATION
  Report Type: 
  Country: None (occurrence: None)
  Receive Date: 20090409
  Receipt Date: 20090326
  Transmission Date: 20091009
  Serious: Yes (Life-Threatening, Hospitalization)
  Sender: FDA-Public Use
  Company Number: JP-GENENTECH-278108

PATIENT
  Sex: Female
  Weight: 55 kg

DRUGS (8)
  1. AVASTIN [Suspect]
     Indication: LARGE INTESTINE CARCINOMA
     Dosage: 250 MG, Q2W
     Route: 041
     Dates: start: 20080903, end: 20090218
  2. ELPLAT [Suspect]
     Indication: LARGE INTESTINE CARCINOMA
     Dosage: 125 MG, Q2W
     Route: 041
     Dates: start: 20080903, end: 20090218
  3. ELPLAT [Suspect]
     Dosage: 100 MG, UNK
  4. FLUOROURACIL [Suspect]
     Indication: LARGE INTESTINE CARCINOMA
     Dosage: 600 MG, Q2W
     Route: 042
     Dates: start: 20080903, end: 20090121
  5. CALCIUM LEVOFOLINATE [Suspect]
     Indication: LARGE INTESTINE CARCINOMA
     Dosage: 300 MG, Q2W
     Route: 041
     Dates: start: 20080903, end: 20090218
  6. KYTRIL [Concomitant]
     Indication: DRUG USE FOR UNKNOWN INDICATION
     Dosage: UNK
     Dates: start: 20080903, end: 20090218
  7. DECADRON [Concomitant]
     Indication: DRUG USE FOR UNKNOWN INDICATION
     Dosage: UNK
     Dates: start: 20080903, end: 20090218
  8. DIPHENHYDRAMINE HCL [Concomitant]
     Indication: DRUG USE FOR UNKNOWN INDICATION
     Dosage: UNK
     Dates: start: 20090218, end: 20090218

REACTIONS (3)
  - SHOCK [None]
  - URTICARIA [None]
  - VOMITING [None]
